FAERS Safety Report 14033316 (Version 2)
Quarter: 2017Q4

REPORT INFORMATION
  Report Type: Spontaneous
  Country: DE (occurrence: DE)
  Receive Date: 20171003
  Receipt Date: 20171006
  Transmission Date: 20180321
  Serious: Yes (Other)
  Sender: FDA-Public Use
  Company Number: DE-JNJFOC-20170927321

PATIENT
  Sex: Female

DRUGS (2)
  1. REGAINE FRAUEN LOESUNG [Suspect]
     Active Substance: MINOXIDIL
     Route: 065
  2. REGAINE FRAUEN LOESUNG [Suspect]
     Active Substance: MINOXIDIL
     Indication: PRODUCT USED FOR UNKNOWN INDICATION
     Route: 065

REACTIONS (2)
  - Blood pressure decreased [Not Recovered/Not Resolved]
  - Discomfort [Not Recovered/Not Resolved]
